FAERS Safety Report 5084971-9 (Version None)
Quarter: 2006Q3

REPORT INFORMATION
  Report Type: 
  Country: None (occurrence: None)
  Receive Date: 20060821
  Receipt Date: 20060731
  Transmission Date: 20061208
  Serious: Yes (Congenital Anomaly)
  Sender: FDA-Public Use
  Company Number: GB-ABBOTT-06P-167-0339429-00

PATIENT
  Age: 6 Month
  Sex: Male
  Weight: 4.29 kg

DRUGS (3)
  1. CLARITHROMYCIN [Suspect]
     Indication: DRUG EXPOSURE DURING PREGNANCY
  2. AMOXICILLIN [Suspect]
     Indication: DRUG EXPOSURE DURING PREGNANCY
  3. LANSOPRAZOLE [Suspect]
     Indication: DRUG EXPOSURE DURING PREGNANCY

REACTIONS (1)
  - ANKYLOGLOSSIA CONGENITAL [None]
